FAERS Safety Report 4514153-8 (Version None)
Quarter: 2004Q4

REPORT INFORMATION
  Report Type: 
  Country: None (occurrence: None)
  Receive Date: 20041124
  Receipt Date: 20041117
  Transmission Date: 20050328
  Serious: Yes (Death)
  Sender: FDA-Public Use
  Company Number: 2004AP05910

PATIENT
  Age: 70 Year
  Sex: Male

DRUGS (6)
  1. DIPRIVAN [Suspect]
     Indication: SEDATIVE THERAPY
     Dosage: 2160 MG DAILY IV
     Route: 042
     Dates: start: 20041024, end: 20041026
  2. BISOLVON [Concomitant]
  3. DIFLUCAN [Concomitant]
  4. MIDAZOLAM HCL [Concomitant]
  5. PAZUCROSS [Concomitant]
  6. ALBUMIN (HUMAN) [Concomitant]

REACTIONS (4)
  - ELECTROCARDIOGRAM R ON T PHENOMENON [None]
  - TORSADE DE POINTES [None]
  - VENTRICULAR FIBRILLATION [None]
  - VENTRICULAR TACHYCARDIA [None]
